FAERS Safety Report 26116832 (Version 1)
Quarter: 2025Q4

REPORT INFORMATION
  Report Type: Spontaneous
  Country: EU (occurrence: EU)
  Receive Date: 20251203
  Receipt Date: 20251203
  Transmission Date: 20260117
  Serious: Yes (Other)
  Sender: AUROBINDO
  Company Number: EU-002147023-NVSC2025DE172543

PATIENT
  Sex: Female

DRUGS (3)
  1. LETROZOLE [Suspect]
     Active Substance: LETROZOLE
     Indication: Hormone receptor positive HER2 positive breast cancer
     Dosage: 2.5 MG, QD (TOTAL DAILY DOSE)
     Dates: start: 20250723
  2. KISQALI [Suspect]
     Active Substance: RIBOCICLIB SUCCINATE
     Indication: Hormone receptor positive HER2 negative breast cancer
     Dosage: 400 MG, QD ((TOTAL DAILY DOSE, 21 DAYS DAILY INTAKE, 7 DAYS PAUSE)
     Dates: start: 20250723, end: 20250824
  3. KISQALI [Suspect]
     Active Substance: RIBOCICLIB SUCCINATE
     Dosage: 200 MG, QD (TOTAL DAILY DOSE, 21 DAYS DAILY INTAKE, 7 DAYS PAUSE)
     Dates: start: 20250825

REACTIONS (1)
  - Neutropenia [Recovered/Resolved]

NARRATIVE: CASE EVENT DATE: 20250820
